FAERS Safety Report 25549457 (Version 1)
Quarter: 2025Q3

REPORT INFORMATION
  Report Type: Spontaneous
  Country: EU (occurrence: EU)
  Receive Date: 20250714
  Receipt Date: 20250714
  Transmission Date: 20251020
  Serious: Yes (Hospitalization)
  Sender: MYLAN
  Company Number: None

PATIENT
  Age: 36 Year
  Sex: Male

DRUGS (36)
  1. ACETAMINOPHEN [Suspect]
     Active Substance: ACETAMINOPHEN
     Indication: Product used for unknown indication
  2. ACETAMINOPHEN [Suspect]
     Active Substance: ACETAMINOPHEN
     Route: 065
  3. ACETAMINOPHEN [Suspect]
     Active Substance: ACETAMINOPHEN
     Route: 065
  4. ACETAMINOPHEN [Suspect]
     Active Substance: ACETAMINOPHEN
  5. CODEINE [Suspect]
     Active Substance: CODEINE
     Indication: Product used for unknown indication
  6. CODEINE [Suspect]
     Active Substance: CODEINE
     Route: 065
  7. CODEINE [Suspect]
     Active Substance: CODEINE
     Route: 065
  8. CODEINE [Suspect]
     Active Substance: CODEINE
  9. IMODIUM [Suspect]
     Active Substance: LOPERAMIDE HYDROCHLORIDE
     Indication: Product used for unknown indication
  10. IMODIUM [Suspect]
     Active Substance: LOPERAMIDE HYDROCHLORIDE
     Route: 065
  11. IMODIUM [Suspect]
     Active Substance: LOPERAMIDE HYDROCHLORIDE
     Route: 065
  12. IMODIUM [Suspect]
     Active Substance: LOPERAMIDE HYDROCHLORIDE
  13. Natriumklorid abcur [Concomitant]
     Dosage: 3000 MILLIGRAM, QD
     Dates: start: 20220824
  14. Natriumklorid abcur [Concomitant]
     Dosage: 3000 MILLIGRAM, QD
     Route: 065
     Dates: start: 20220824
  15. Natriumklorid abcur [Concomitant]
     Dosage: 3000 MILLIGRAM, QD
     Route: 065
     Dates: start: 20220824
  16. Natriumklorid abcur [Concomitant]
     Dosage: 3000 MILLIGRAM, QD
     Dates: start: 20220824
  17. Vi-siblin [Concomitant]
     Indication: Product used for unknown indication
     Dosage: UNK, QD (GRANULES IN SACHET)
     Dates: start: 20220928
  18. Vi-siblin [Concomitant]
     Dosage: UNK, QD (GRANULES IN SACHET)
     Route: 065
     Dates: start: 20220928
  19. Vi-siblin [Concomitant]
     Dosage: UNK, QD (GRANULES IN SACHET)
     Route: 065
     Dates: start: 20220928
  20. Vi-siblin [Concomitant]
     Dosage: UNK, QD (GRANULES IN SACHET)
     Dates: start: 20220928
  21. FOLIC ACID [Concomitant]
     Active Substance: FOLIC ACID
     Dosage: UNK, QD
     Dates: start: 20220929
  22. FOLIC ACID [Concomitant]
     Active Substance: FOLIC ACID
     Dosage: UNK, QD
     Route: 065
     Dates: start: 20220929
  23. FOLIC ACID [Concomitant]
     Active Substance: FOLIC ACID
     Dosage: UNK, QD
     Route: 065
     Dates: start: 20220929
  24. FOLIC ACID [Concomitant]
     Active Substance: FOLIC ACID
     Dosage: UNK, QD
     Dates: start: 20220929
  25. OMEPRAZOLE [Concomitant]
     Active Substance: OMEPRAZOLE
     Dosage: 40 MILLIGRAM, QD
     Dates: start: 20220827
  26. OMEPRAZOLE [Concomitant]
     Active Substance: OMEPRAZOLE
     Dosage: 40 MILLIGRAM, QD
     Route: 065
     Dates: start: 20220827
  27. OMEPRAZOLE [Concomitant]
     Active Substance: OMEPRAZOLE
     Dosage: 40 MILLIGRAM, QD
     Route: 065
     Dates: start: 20220827
  28. OMEPRAZOLE [Concomitant]
     Active Substance: OMEPRAZOLE
     Dosage: 40 MILLIGRAM, QD
     Dates: start: 20220827
  29. Betolvex [Concomitant]
     Dosage: 1 MILLIGRAM, QD
     Dates: start: 20220929
  30. Betolvex [Concomitant]
     Dosage: 1 MILLIGRAM, QD
     Route: 065
     Dates: start: 20220929
  31. Betolvex [Concomitant]
     Dosage: 1 MILLIGRAM, QD
     Route: 065
     Dates: start: 20220929
  32. Betolvex [Concomitant]
     Dosage: 1 MILLIGRAM, QD
     Dates: start: 20220929
  33. Glucose Na K Baxter [Concomitant]
  34. Glucose Na K Baxter [Concomitant]
     Route: 065
  35. Glucose Na K Baxter [Concomitant]
     Route: 065
  36. Glucose Na K Baxter [Concomitant]

REACTIONS (6)
  - Suicide attempt [Recovering/Resolving]
  - Metabolic acidosis [Recovering/Resolving]
  - Toxicity to various agents [Recovering/Resolving]
  - Hypokalaemia [Recovering/Resolving]
  - Vomiting [Recovering/Resolving]
  - Intentional overdose [Recovering/Resolving]

NARRATIVE: CASE EVENT DATE: 20221012
